FAERS Safety Report 17275825 (Version 2)
Quarter: 2020Q1

REPORT INFORMATION
  Report Type: Spontaneous
  Country: HR (occurrence: HR)
  Receive Date: 20200116
  Receipt Date: 20200213
  Transmission Date: 20200409
  Serious: Yes (Death)
  Sender: FDA-Public Use
  Company Number: HR-ABBVIE-20K-216-3235464-00

PATIENT
  Age: 75 Year
  Sex: Male

DRUGS (2)
  1. WARFARIN [Concomitant]
     Active Substance: WARFARIN
     Indication: PRODUCT USED FOR UNKNOWN INDICATION
  2. DUODOPA [Suspect]
     Active Substance: CARBIDOPA\LEVODOPA
     Indication: PARKINSON^S DISEASE
     Route: 050
     Dates: start: 201703, end: 20200108

REACTIONS (3)
  - Cardiovascular disorder [Unknown]
  - Dementia [Fatal]
  - Death [Fatal]

NARRATIVE: CASE EVENT DATE: 20200108
